FAERS Safety Report 7823941-1 (Version None)
Quarter: 2011Q4

REPORT INFORMATION
  Report Type: 
  Country: None (occurrence: None)
  Receive Date: 20111019
  Receipt Date: 20111019
  Transmission Date: 20120403
  Serious: Yes (Death)
  Sender: FDA-Public Use
  Company Number: IT-PFIZER INC-2011029681

PATIENT
  Age: 50 Year
  Sex: Female

DRUGS (1)
  1. FLUCONAZOLE [Suspect]
     Indication: CULTURE POSITIVE
     Dosage: 200 MG, 1X/DAY
     Route: 042
     Dates: start: 20100528, end: 20100613

REACTIONS (1)
  - HEPATIC ENZYME INCREASED [None]
